FAERS Safety Report 9971350 (Version 1)
Quarter: 2014Q1

REPORT INFORMATION
  Report Type: Spontaneous
  Country: US (occurrence: None)
  Receive Date: 20140304
  Receipt Date: 20140304
  Transmission Date: 20141002
  Serious: Yes (Other)
  Sender: FDA-Public Use
  Company Number: NES-AE-14-001

PATIENT
  Age: 44 Year
  Sex: Female

DRUGS (1)
  1. OXYCODONE [Suspect]

REACTIONS (3)
  - Drug abuse [None]
  - Adrenal insufficiency [None]
  - Syncope [None]
